FAERS Safety Report 6637572-2 (Version None)
Quarter: 2010Q1

REPORT INFORMATION
  Report Type: 
  Country: None (occurrence: None)
  Receive Date: 20100317
  Receipt Date: 20100305
  Transmission Date: 20100710
  Serious: Yes (Life-Threatening, Hospitalization, Other)
  Sender: FDA-Public Use
  Company Number: US-JNJFOC-20091004215

PATIENT
  Sex: Female
  Weight: 68.04 kg

DRUGS (4)
  1. REMICADE [Suspect]
     Indication: CROHN'S DISEASE
     Route: 042
     Dates: start: 20060101
  2. IMURAN [Concomitant]
     Indication: CROHN'S DISEASE
  3. IMURAN [Concomitant]
  4. VITAMIN TAB [Concomitant]

REACTIONS (2)
  - HEADACHE [None]
  - HEPATOSPLENIC T-CELL LYMPHOMA [None]
